FAERS Safety Report 25772861 (Version 1)
Quarter: 2025Q3

REPORT INFORMATION
  Report Type: Spontaneous
  Country: AU (occurrence: None)
  Receive Date: 20250906
  Receipt Date: 20250906
  Transmission Date: 20251021
  Serious: Yes (Other)
  Sender: FDA-CTU
  Company Number: None

PATIENT
  Age: 34 Year
  Sex: Female
  Weight: 76 kg

DRUGS (1)
  1. MOUNJARO [Suspect]
     Active Substance: TIRZEPATIDE
     Dates: start: 20250603, end: 20250826

REACTIONS (4)
  - Vision blurred [None]
  - Headache [None]
  - Visual impairment [None]
  - Asthenopia [None]

NARRATIVE: CASE EVENT DATE: 20250804
